FAERS Safety Report 25275748 (Version 1)
Quarter: 2025Q2

REPORT INFORMATION
  Report Type: Report from Study
  Country: US (occurrence: US)
  Receive Date: 20250507
  Receipt Date: 20250507
  Transmission Date: 20250717
  Serious: Yes (Other)
  Sender: ABBVIE
  Company Number: US-ABBVIE-6268353

PATIENT
  Age: 22 Year
  Sex: Female

DRUGS (1)
  1. SKYRIZI [Suspect]
     Active Substance: RISANKIZUMAB-RZAA
     Indication: Colitis ulcerative
     Route: 042
     Dates: start: 20250220

REACTIONS (5)
  - Sepsis [Recovered/Resolved]
  - Protein urine present [Recovered/Resolved]
  - Inflammation [Recovered/Resolved]
  - White blood cell count increased [Recovered/Resolved]
  - Urine ketone body present [Recovered/Resolved]

NARRATIVE: CASE EVENT DATE: 20250424
